FAERS Safety Report 24339318 (Version 6)
Quarter: 2024Q4

REPORT INFORMATION
  Report Type: Spontaneous
  Country: US (occurrence: US)
  Receive Date: 20240919
  Receipt Date: 20241226
  Transmission Date: 20250114
  Serious: Yes (Life-Threatening, Hospitalization, Other)
  Sender: SANOFI AVENTIS
  Company Number: US-SA-2024SA267271

PATIENT
  Age: 49 Year
  Sex: Male

DRUGS (1)
  1. DUPIXENT [Suspect]
     Active Substance: DUPILUMAB
     Indication: Nasal polyps
     Dosage: 300MG, QOW
     Route: 058

REACTIONS (9)
  - Appendicitis perforated [Recovering/Resolving]
  - Cerebrovascular accident [Recovering/Resolving]
  - Appendicitis [Unknown]
  - Transient ischaemic attack [Unknown]
  - Coagulopathy [Unknown]
  - Psoriasis [Unknown]
  - Acne [Unknown]
  - Secretion discharge [Unknown]
  - Injection site pain [Unknown]

NARRATIVE: CASE EVENT DATE: 20241202
